FAERS Safety Report 24176548 (Version 10)
Quarter: 2025Q4

REPORT INFORMATION
  Report Type: Spontaneous
  Country: JP (occurrence: JP)
  Receive Date: 20240806
  Receipt Date: 20251211
  Transmission Date: 20260117
  Serious: Yes (Death, Other)
  Sender: GENMAB
  Company Number: JP-GENMAB-2024-02392AA

PATIENT
  Age: 84 Year
  Sex: Female

DRUGS (7)
  1. EPKINLY [Suspect]
     Active Substance: EPCORITAMAB-BYSP
     Indication: Diffuse large B-cell lymphoma
     Dosage: 0.16 MILLIGRAM, SINGLE, THE FIRST ADMINISTRATION
     Route: 058
     Dates: start: 20240618, end: 20240618
  2. EPKINLY [Suspect]
     Active Substance: EPCORITAMAB-BYSP
     Dosage: 0.8 MILLIGRAM, SINGLE, THE SECOND ADMINISTRATION
     Route: 058
     Dates: start: 20240625, end: 20240625
  3. DECADRON [Concomitant]
     Active Substance: DEXAMETHASONE
     Indication: Prophylaxis
     Dosage: 16 MILLIGRAM, ON DAY 1, DAY 2, DAY 3 AND DAY 4 OF ADMINISTRATION OF EPKINLY, FROM THE FIRST TO THE S
     Dates: start: 20240618, end: 20240628
  4. DIPHENHYDRAMINE [Concomitant]
     Active Substance: DIPHENHYDRAMINE
     Indication: Prophylaxis
     Dosage: 50 MILLIGRAM, ON DAY 1 OF ADMINISTRATION OF EPKINLY, FROM THE FIRST TO THE SECOND ADMINISTRATION IN
     Dates: start: 20240618, end: 20240625
  5. CALONAL [Concomitant]
     Active Substance: ACETAMINOPHEN
     Indication: Prophylaxis
     Dosage: 1000 MILLIGRAM, ON DAY 1 OF ADMINISTRATION OF EPKINLY, FROM THE FIRST TO THE SECOND ADMINISTRATION I
     Dates: start: 20240618, end: 20240625
  6. ACYCLOVIR [Concomitant]
     Active Substance: ACYCLOVIR
     Indication: Prophylaxis
     Dosage: UNK
  7. SULFAMETHOXAZOLE\TRIMETHOPRIM [Concomitant]
     Active Substance: SULFAMETHOXAZOLE\TRIMETHOPRIM
     Indication: Prophylaxis
     Dosage: UNK

REACTIONS (15)
  - Hypogammaglobulinaemia [Unknown]
  - Blood bilirubin increased [Unknown]
  - Hyperkalaemia [Unknown]
  - Cytomegalovirus infection reactivation [Unknown]
  - Cytokine release syndrome [Recovered/Resolved]
  - Diffuse large B-cell lymphoma [Fatal]
  - Malaise [Unknown]
  - Hypoalbuminaemia [Unknown]
  - Alanine aminotransferase increased [Unknown]
  - Aspartate aminotransferase increased [Unknown]
  - Hyponatraemia [Unknown]
  - Constipation [Unknown]
  - Blood creatinine increased [Unknown]
  - Oedema peripheral [Unknown]
  - Injection site reaction [Unknown]

NARRATIVE: CASE EVENT DATE: 20240101
